FAERS Safety Report 7472811-X (Version None)
Quarter: 2011Q2

REPORT INFORMATION
  Report Type: 
  Country: None (occurrence: None)
  Receive Date: 20110511
  Receipt Date: 20110506
  Transmission Date: 20111010
  Serious: Yes (Hospitalization, Other)
  Sender: FDA-Public Use
  Company Number: FR-SANOFI-AVENTIS-2011SA028123

PATIENT
  Age: 81 Year
  Sex: Female

DRUGS (11)
  1. ADVIL LIQUI-GELS [Concomitant]
     Dates: end: 20101231
  2. KETUM [Concomitant]
     Dates: end: 20110106
  3. LEXOMIL [Concomitant]
  4. CELIPROLOL [Concomitant]
  5. FENOFIBRATE [Concomitant]
     Dates: end: 20110106
  6. DAFALGAN CODEINE [Concomitant]
     Dates: end: 20101231
  7. PANTOPRAZOLE [Concomitant]
     Dates: end: 20110106
  8. FORLAX [Concomitant]
     Dates: end: 20110101
  9. INDAPAMIDE [Suspect]
     Indication: HYPERTENSION
     Route: 048
     Dates: end: 20101230
  10. NOCTRAN [Concomitant]
  11. KETOPROFEN [Concomitant]

REACTIONS (3)
  - GENERAL PHYSICAL HEALTH DETERIORATION [None]
  - HYPOKALAEMIA [None]
  - RENAL FAILURE [None]
